FAERS Safety Report 5212109-3 (Version None)
Quarter: 2007Q1

REPORT INFORMATION
  Report Type: 
  Country: None (occurrence: None)
  Receive Date: 20070118
  Receipt Date: 20070111
  Transmission Date: 20070707
  Serious: Yes (Death, Life-Threatening, Hospitalization, Disabling, Other)
  Sender: FDA-Public Use
  Company Number: GB-MERCK-0701GBR00077

PATIENT
  Age: 63 Year
  Sex: Female
  Weight: 50 kg

DRUGS (11)
  1. FOSAMAX [Suspect]
     Route: 048
     Dates: start: 20061208
  2. ASPIRIN [Concomitant]
     Route: 048
  3. BENDROFLUMETHIAZIDE [Concomitant]
     Route: 048
  4. CALCIUM CARBONATE AND CHOLECALCIFEROL [Concomitant]
     Route: 048
  5. BENSERAZIDE HYDROCHLORIDE AND LEVODOPA [Concomitant]
     Route: 048
  6. DEXAMETHASONE [Concomitant]
  7. DEXAMETHASONE [Concomitant]
     Route: 048
  8. DIAZEPAM [Concomitant]
     Route: 048
  9. LANSOPRAZOLE [Concomitant]
     Route: 048
  10. THIAMINE [Concomitant]
     Route: 048
  11. LEVOTHYROXINE SODIUM [Concomitant]
     Route: 048

REACTIONS (1)
  - TOXIC EPIDERMAL NECROLYSIS [None]
